FAERS Safety Report 19107369 (Version 1)
Quarter: 2021Q2

REPORT INFORMATION
  Report Type: Spontaneous
  Country: US (occurrence: US)
  Receive Date: 20210407
  Receipt Date: 20210407
  Transmission Date: 20210717
  Serious: No
  Sender: FDA-Public Use
  Company Number: None

PATIENT
  Age: 48 Year
  Sex: Female

DRUGS (1)
  1. HUMIRA [Suspect]
     Active Substance: ADALIMUMAB
     Indication: RHEUMATOID ARTHRITIS
     Route: 030
     Dates: start: 20200325

REACTIONS (3)
  - Uterine polyp [None]
  - Endometriosis [None]
  - Hysterectomy [None]

NARRATIVE: CASE EVENT DATE: 20210407
